FAERS Safety Report 6772755-2 (Version None)
Quarter: 2010Q2

REPORT INFORMATION
  Report Type: 
  Country: None (occurrence: None)
  Receive Date: 20100616
  Receipt Date: 20100608
  Transmission Date: 20101027
  Serious: Yes (Other)
  Sender: FDA-Public Use
  Company Number: US-AMGEN-QUU416972

PATIENT
  Sex: Male

DRUGS (3)
  1. NPLATE [Suspect]
     Indication: IDIOPATHIC THROMBOCYTOPENIC PURPURA
     Dates: start: 20090401
  2. MYCOPHENOLATE MOFETIL [Concomitant]
     Dates: start: 20100501
  3. UNSPECIFIED MEDICATION [Concomitant]

REACTIONS (1)
  - ACUTE MYELOID LEUKAEMIA [None]
